FAERS Safety Report 10027398 (Version 2)
Quarter: 2014Q2

REPORT INFORMATION
  Report Type: Spontaneous
  Country: US (occurrence: US)
  Receive Date: 20140321
  Receipt Date: 20140416
  Transmission Date: 20141212
  Serious: No
  Sender: FDA-Public Use
  Company Number: US-PFIZER INC-2014076851

PATIENT
  Age: 44 Year
  Sex: Male

DRUGS (2)
  1. GLUCOTROL [Suspect]
     Dosage: 10 MG, 1X/DAY
     Dates: start: 20130603
  2. GLUCOTROL [Suspect]
     Dosage: 5 MG, 1X/DAY
     Dates: start: 20140304

REACTIONS (1)
  - Drug intolerance [Unknown]
